FAERS Safety Report 21166931 (Version 2)
Quarter: 2024Q3

REPORT INFORMATION
  Report Type: Report from Study
  Country: CA (occurrence: CA)
  Receive Date: 20220803
  Receipt Date: 20240722
  Transmission Date: 20241016
  Serious: Yes (Life-Threatening, Other)
  Sender: JOHNSON AND JOHNSON
  Company Number: CA-JNJFOC-20220761073

PATIENT
  Sex: Male

DRUGS (1)
  1. SIMPONI [Suspect]
     Active Substance: GOLIMUMAB
     Indication: Ankylosing spondylitis
     Route: 058
     Dates: start: 20160713

REACTIONS (1)
  - Abdominal neoplasm [Recovered/Resolved]
